FAERS Safety Report 19184762 (Version 1)
Quarter: 2021Q2

REPORT INFORMATION
  Report Type: Spontaneous
  Country: DE (occurrence: DE)
  Receive Date: 20210427
  Receipt Date: 20210427
  Transmission Date: 20210717
  Serious: Yes (Other)
  Sender: FDA-Public Use
  Company Number: DE-PFIZER INC-2021414213

PATIENT
  Age: 31 Year
  Sex: Female
  Weight: 69 kg

DRUGS (1)
  1. CYTOTEC [Suspect]
     Active Substance: MISOPROSTOL
     Indication: LABOUR INDUCTION
     Route: 048
     Dates: end: 20210309

REACTIONS (4)
  - Haemorrhage [Not Recovered/Not Resolved]
  - Off label use [Unknown]
  - Uterine tachysystole [Recovered/Resolved]
  - Uterine cervical laceration [Not Recovered/Not Resolved]

NARRATIVE: CASE EVENT DATE: 20210310
